FAERS Safety Report 7372905-3 (Version None)
Quarter: 2011Q1

REPORT INFORMATION
  Report Type: 
  Country: None (occurrence: None)
  Receive Date: 20110324
  Receipt Date: 20110322
  Transmission Date: 20110831
  Serious: Yes (Other)
  Sender: FDA-Public Use
  Company Number: US-PFIZER INC-2010169419

PATIENT
  Sex: Female
  Weight: 58.05 kg

DRUGS (6)
  1. ALBUTEROL [Concomitant]
     Indication: CHRONIC OBSTRUCTIVE PULMONARY DISEASE
     Dosage: UNK
     Dates: start: 19950101
  2. CELEBREX [Concomitant]
     Dosage: UNK
  3. FLEXERIL [Concomitant]
     Indication: NERVE INJURY
     Dosage: 10 MG, AS NEEDED
     Route: 048
     Dates: start: 20090301
  4. SPIRIVA [Concomitant]
     Indication: CHRONIC OBSTRUCTIVE PULMONARY DISEASE
     Dosage: UNK
     Dates: start: 20050101
  5. LYRICA [Concomitant]
     Indication: NERVE INJURY
     Dosage: 150 MG, 3X/DAY
     Route: 048
     Dates: start: 20090301
  6. CHANTIX [Suspect]
     Indication: SMOKING CESSATION THERAPY
     Dosage: 0.5 MG, DAILY
     Route: 048
     Dates: start: 20101130, end: 20110201

REACTIONS (2)
  - TONGUE BLISTERING [None]
  - HYPERTENSION [None]
